FAERS Safety Report 7243565-7 (Version None)
Quarter: 2011Q1

REPORT INFORMATION
  Report Type: 
  Country: None (occurrence: None)
  Receive Date: 20110125
  Receipt Date: 20110119
  Transmission Date: 20110831
  Serious: Yes (Hospitalization, Other)
  Sender: FDA-Public Use
  Company Number: US-BAXTER-2010BH024437

PATIENT
  Age: 17 Year
  Sex: Female
  Weight: 53 kg

DRUGS (4)
  1. STERILE WATER FOR INJECTION IN PLASTIC CONTAINER [Suspect]
     Indication: SEPSIS
     Route: 042
     Dates: start: 20100922, end: 20100922
  2. STERILE WATER FOR INJECTION IN PLASTIC CONTAINER [Suspect]
     Indication: MEDICATION DILUTION
     Route: 042
     Dates: start: 20100922, end: 20100922
  3. CEFTRIAXONE [Suspect]
     Indication: SEPSIS
     Route: 042
     Dates: start: 20100922, end: 20100922
  4. CEFTRIAXONE [Suspect]
     Indication: ANTIBIOTIC THERAPY
     Route: 042
     Dates: start: 20100922, end: 20100922

REACTIONS (3)
  - HYPOTENSION [None]
  - CHILLS [None]
  - TACHYCARDIA [None]
